FAERS Safety Report 4801842-0 (Version None)
Quarter: 2005Q4

REPORT INFORMATION
  Report Type: 
  Country: None (occurrence: None)
  Receive Date: 20051011
  Receipt Date: 20050927
  Transmission Date: 20060501
  Serious: Yes (Other)
  Sender: FDA-Public Use
  Company Number: 2005121878

PATIENT
  Sex: Female
  Weight: 79.3795 kg

DRUGS (8)
  1. BENADRYL [Suspect]
     Indication: HYPERSENSITIVITY
     Dosage: 1-2X A WEEK TO 1-2 TABS DAILY AS NEEDED, ORAL
     Route: 048
     Dates: start: 19950101, end: 20050824
  2. NIFEDIPINE [Concomitant]
  3. ESCITALOPRAM OXALATE [Concomitant]
  4. PROGESTERONE [Concomitant]
  5. TELMISARTAN (TELMISARTAN) [Concomitant]
  6. PRAVASTATIN [Concomitant]
  7. TRIAMCINOLONE ACETONIDE [Concomitant]
  8. IBUPROFEN [Concomitant]

REACTIONS (6)
  - AMNESIA [None]
  - COGNITIVE DISORDER [None]
  - DEMENTIA [None]
  - DEPRESSION [None]
  - DISEASE PROGRESSION [None]
  - HYPERSENSITIVITY [None]
